FAERS Safety Report 7811264-6 (Version None)
Quarter: 2011Q4

REPORT INFORMATION
  Report Type: 
  Country: None (occurrence: None)
  Receive Date: 20111012
  Receipt Date: 20111012
  Transmission Date: 20120403
  Serious: No
  Sender: FDA-Public Use
  Company Number: None

PATIENT
  Sex: Female
  Weight: 58.514 kg

DRUGS (1)
  1. ACTONEL [Suspect]
     Indication: OSTEOPOROSIS
     Dosage: 135MG Q MONTH PO
     Route: 048
     Dates: start: 20110904

REACTIONS (6)
  - OCULAR HYPERAEMIA [None]
  - FEELING ABNORMAL [None]
  - HYPERAESTHESIA [None]
  - PAIN [None]
  - INFLUENZA LIKE ILLNESS [None]
  - PHOTOPHOBIA [None]
